FAERS Safety Report 8869853 (Version 1)
Quarter: 2012Q4

REPORT INFORMATION
  Report Type: 
  Country: US (occurrence: US)
  Receive Date: 20121028
  Receipt Date: 20121028
  Transmission Date: 20130627
  Serious: Yes (Hospitalization)
  Sender: FDA-Public Use
  Company Number: US-JNJFOC-20121008980

PATIENT
  Age: 54 None
  Sex: Female
  Weight: 77.11 kg

DRUGS (9)
  1. LEVAQUIN [Suspect]
     Indication: BRONCHITIS
     Route: 048
     Dates: end: 201201
  2. LEVAQUIN [Suspect]
     Indication: BRONCHITIS
     Route: 048
     Dates: start: 201010
  3. LEVAQUIN [Suspect]
     Indication: PNEUMONIA
     Route: 042
  4. LEVAQUIN [Suspect]
     Indication: BRONCHITIS
     Route: 042
  5. PREDNISONE [Concomitant]
     Indication: BRONCHITIS
     Route: 048
  6. UNKNOWN MEDICATION [Concomitant]
     Route: 065
  7. VACCINES [Concomitant]
     Indication: PNEUMONIA
     Route: 065
  8. FLU VACCINE [Concomitant]
     Indication: INFLUENZA
     Route: 065
  9. PENICILLIN [Concomitant]
     Route: 065

REACTIONS (6)
  - Mixed connective tissue disease [Not Recovered/Not Resolved]
  - Bronchitis [Recovered/Resolved]
  - Pneumonia [Recovered/Resolved]
  - Urticaria [Recovered/Resolved]
  - Adverse event [Unknown]
  - Hypersensitivity [Recovered/Resolved]
